FAERS Safety Report 6497388-7 (Version None)
Quarter: 2009Q4

REPORT INFORMATION
  Report Type: 
  Country: None (occurrence: None)
  Receive Date: 20091215
  Receipt Date: 20091030
  Transmission Date: 20100525
  Serious: No
  Sender: FDA-Public Use
  Company Number: A0814218A

PATIENT
  Sex: Male

DRUGS (3)
  1. AVODART [Suspect]
     Dosage: .5MG UNKNOWN
     Route: 048
     Dates: start: 20050101
  2. CRESTOR [Concomitant]
  3. UNSPECIFIED MEDICATION [Concomitant]

REACTIONS (1)
  - SWOLLEN TONGUE [None]
